FAERS Safety Report 11229165 (Version 1)
Quarter: 2015Q2

REPORT INFORMATION
  Report Type: Spontaneous
  Country: JP (occurrence: JP)
  Receive Date: 20150630
  Receipt Date: 20150630
  Transmission Date: 20150821
  Serious: Yes (Death, Hospitalization)
  Sender: FDA-Public Use
  Company Number: JP-UNITED THERAPEUTICS-UNT-2015-007755

PATIENT
  Age: 48 Year
  Sex: Female
  Weight: 36 kg

DRUGS (1)
  1. REMODULIN [Suspect]
     Active Substance: TREPROSTINIL
     Indication: PULMONARY ARTERIAL HYPERTENSION
     Dosage: UNK
     Route: 041
     Dates: start: 20141206

REACTIONS (6)
  - Diarrhoea [Unknown]
  - Condition aggravated [Fatal]
  - Pneumonia [Recovered/Resolved]
  - Haemorrhage [Fatal]
  - Platelet count decreased [Unknown]
  - Right ventricular failure [Unknown]

NARRATIVE: CASE EVENT DATE: 20150317
